FAERS Safety Report 8418416-5 (Version None)
Quarter: 2012Q2

REPORT INFORMATION
  Report Type: 
  Country: None (occurrence: None)
  Receive Date: 20120607
  Receipt Date: 20120604
  Transmission Date: 20120825
  Serious: Yes (Hospitalization, Other)
  Sender: FDA-Public Use
  Company Number: IN-PFIZER INC-2012020143

PATIENT
  Age: 50 Year
  Sex: Male

DRUGS (1)
  1. SUTENT [Suspect]
     Indication: METASTATIC RENAL CELL CARCINOMA
     Dosage: 37.5 MG, 1X/DAY
     Route: 048
     Dates: start: 20111224, end: 20120531

REACTIONS (6)
  - RECTAL ULCER [None]
  - FURUNCLE [None]
  - MOUTH ULCERATION [None]
  - MYOCARDIAL INFARCTION [None]
  - SKIN ULCER [None]
  - DYSGEUSIA [None]
